FAERS Safety Report 12225346 (Version 1)
Quarter: 2016Q1

REPORT INFORMATION
  Report Type: Spontaneous
  Country: US (occurrence: US)
  Receive Date: 20160331
  Receipt Date: 20160331
  Transmission Date: 20160526
  Serious: No
  Sender: FDA-Public Use
  Company Number: US-GLAXOSMITHKLINE-US2016038394

PATIENT
  Age: 49 Year
  Sex: Female

DRUGS (9)
  1. IMURAN [Concomitant]
     Active Substance: AZATHIOPRINE
  2. APTIOM [Concomitant]
     Active Substance: ESLICARBAZEPINE ACETATE
  3. SPIRONOLACTONE. [Concomitant]
     Active Substance: SPIRONOLACTONE
  4. MS CONTIN [Concomitant]
     Active Substance: MORPHINE SULFATE
  5. BUMETANIDE. [Concomitant]
     Active Substance: BUMETANIDE
  6. MAGNESIUM [Concomitant]
     Active Substance: MAGNESIUM
  7. KEPPRA [Concomitant]
     Active Substance: LEVETIRACETAM
  8. BENLYSTA [Suspect]
     Active Substance: BELIMUMAB
     Indication: SYSTEMIC LUPUS ERYTHEMATOSUS
     Dosage: UNK
     Dates: start: 20160309
  9. METOLAZONE. [Concomitant]
     Active Substance: METOLAZONE

REACTIONS (4)
  - Fatigue [Recovered/Resolved]
  - Hypersomnia [Recovered/Resolved]
  - Feeling abnormal [Recovered/Resolved]
  - Asthenia [Recovered/Resolved]

NARRATIVE: CASE EVENT DATE: 20160309
